FAERS Safety Report 25323160 (Version 1)
Quarter: 2025Q2

REPORT INFORMATION
  Report Type: Spontaneous
  Country: US (occurrence: US)
  Receive Date: 20250516
  Receipt Date: 20250516
  Transmission Date: 20250716
  Serious: Yes (Other)
  Sender: PIERRE FABRE MEDICAMENT
  Company Number: US-PFM-2025-02334

PATIENT
  Age: 3 Month
  Sex: Female

DRUGS (3)
  1. PROPRANOLOL [Suspect]
     Active Substance: PROPRANOLOL HYDROCHLORIDE
     Indication: Noonan syndrome
     Route: 065
  2. PROPRANOLOL [Suspect]
     Active Substance: PROPRANOLOL HYDROCHLORIDE
     Indication: Off label use
  3. PROPRANOLOL [Suspect]
     Active Substance: PROPRANOLOL HYDROCHLORIDE
     Indication: Hypertrophic cardiomyopathy

REACTIONS (8)
  - Pulmonary oedema [Recovered/Resolved]
  - Pulmonary haemorrhage [Recovered/Resolved]
  - Rhinovirus infection [Unknown]
  - Adenovirus infection [Unknown]
  - Enterovirus infection [Unknown]
  - Bradycardia [Unknown]
  - Drug ineffective for unapproved indication [Unknown]
  - Off label use [Unknown]
